FAERS Safety Report 7834328-X (Version None)
Quarter: 2011Q4

REPORT INFORMATION
  Report Type: 
  Country: None (occurrence: None)
  Receive Date: 20111024
  Receipt Date: 20111011
  Transmission Date: 20120403
  Serious: Yes (Other)
  Sender: FDA-Public Use
  Company Number: PHHY2011US20347

PATIENT
  Sex: Male
  Weight: 96 kg

DRUGS (7)
  1. TASIGNA [Suspect]
     Indication: CHRONIC MYELOID LEUKAEMIA
     Dosage: 400 MG, BID
     Route: 048
     Dates: start: 20110121
  2. SINGULAIR [Concomitant]
     Dosage: 10 MG DAILY
     Route: 048
  3. TASIGNA [Suspect]
     Dosage: 400 MG PER DAY
     Route: 048
     Dates: start: 20110331
  4. AMBIEN [Concomitant]
     Indication: INSOMNIA
     Dosage: 5 MG, UNK
     Route: 048
     Dates: start: 20110316
  5. TASIGNA [Suspect]
     Dosage: 150 MG, BID
     Route: 048
     Dates: start: 20110125
  6. ADVAIR DISKUS 100/50 [Concomitant]
  7. ALBUTEROL [Concomitant]
     Dosage: 90 UG AEROSOL SOLUTION

REACTIONS (7)
  - ALANINE AMINOTRANSFERASE INCREASED [None]
  - ASPARTATE AMINOTRANSFERASE INCREASED [None]
  - HEPATIC ENZYME INCREASED [None]
  - MUSCLE SPASMS [None]
  - BLOOD BILIRUBIN INCREASED [None]
  - MYALGIA [None]
  - ACNE [None]
